APPROVED DRUG PRODUCT: SELEGILINE HYDROCHLORIDE
Active Ingredient: SELEGILINE HYDROCHLORIDE
Strength: 5MG
Dosage Form/Route: TABLET;ORAL
Application: A074871 | Product #001 | TE Code: AB
Applicant: APOTEX INC
Approved: Jun 6, 1997 | RLD: No | RS: Yes | Type: RX